FAERS Safety Report 13928758 (Version 2)
Quarter: 2017Q3

REPORT INFORMATION
  Report Type: Spontaneous
  Country: FR (occurrence: FR)
  Receive Date: 20170901
  Receipt Date: 20170908
  Transmission Date: 20171127
  Serious: Yes (Other)
  Sender: FDA-Public Use
  Company Number: FR-009507513-1708FRA013704

PATIENT
  Age: 79 Year
  Sex: Male

DRUGS (3)
  1. FLAGYL [Concomitant]
     Active Substance: METRONIDAZOLE\METRONIDAZOLE HYDROCHLORIDE
     Indication: LUNG DISORDER
     Dosage: UNK UNK, UNKNOWN FREQ.
     Route: 065
  2. ROCEPHIN [Concomitant]
     Active Substance: CEFTRIAXONE SODIUM
     Indication: LUNG DISORDER
     Dosage: UNK UNK, UNKNOWN FREQ.
     Route: 065
  3. FIDAXOMICIN [Suspect]
     Active Substance: FIDAXOMICIN
     Indication: CLOSTRIDIUM DIFFICILE INFECTION
     Dosage: 1 DF, BID
     Route: 065

REACTIONS (3)
  - Intentional product misuse [Unknown]
  - Pseudomembranous colitis [Unknown]
  - Treatment failure [Unknown]

NARRATIVE: CASE EVENT DATE: 20170816
